FAERS Safety Report 8492609-3 (Version None)
Quarter: 2012Q2

REPORT INFORMATION
  Report Type: 
  Country: None (occurrence: None)
  Receive Date: 20120629
  Receipt Date: 20120629
  Transmission Date: 20120825
  Serious: Yes (Other)
  Sender: FDA-Public Use
  Company Number: None

PATIENT
  Age: 50 Year
  Sex: Female

DRUGS (1)
  1. REMICADE [Suspect]
     Indication: PSORIASIS
     Dosage: 440MG WEEKS 0 AND 2 IV
     Route: 042
     Dates: start: 20120314, end: 20120314

REACTIONS (4)
  - OROPHARYNGEAL PAIN [None]
  - PYREXIA [None]
  - PALPITATIONS [None]
  - HYPERSENSITIVITY [None]
